FAERS Safety Report 6044675-2 (Version None)
Quarter: 2009Q1

REPORT INFORMATION
  Report Type: 
  Country: None (occurrence: None)
  Receive Date: 20090120
  Receipt Date: 20090108
  Transmission Date: 20090719
  Serious: Yes (Hospitalization)
  Sender: FDA-Public Use
  Company Number: US-PFIZER INC-2008098089

PATIENT
  Age: 6 Year
  Sex: Male

DRUGS (3)
  1. SERTRALINE [Suspect]
  2. DEXTROMETHORPHAN HYDROBROMIDE [Interacting]
     Route: 048
  3. CAFFEINE [Concomitant]

REACTIONS (3)
  - DRUG INTERACTION [None]
  - OVERDOSE [None]
  - SEROTONIN SYNDROME [None]
